FAERS Safety Report 10012253 (Version 1)
Quarter: 2014Q1

REPORT INFORMATION
  Report Type: Spontaneous
  Country: US (occurrence: US)
  Receive Date: 20140314
  Receipt Date: 20140314
  Transmission Date: 20141002
  Serious: Yes (Hospitalization)
  Sender: FDA-Public Use
  Company Number: 2014SP001300

PATIENT
  Sex: Female
  Weight: 88 kg

DRUGS (4)
  1. FLUOROURACIL [Suspect]
     Indication: ADENOCARCINOMA
     Route: 042
     Dates: start: 20120911
  2. FLUOROURACIL [Suspect]
     Indication: ADENOCARCINOMA
     Route: 042
     Dates: start: 20120911
  3. OXALIPLATIN [Suspect]
     Indication: ADENOCARCINOMA
     Route: 042
     Dates: start: 20120911
  4. FOLINIC ACID [Suspect]
     Indication: ADENOCARCINOMA
     Route: 042
     Dates: start: 20120911

REACTIONS (3)
  - Lung infection [Recovered/Resolved]
  - Laryngitis [Recovered/Resolved]
  - Pneumonia [Recovered/Resolved]
